FAERS Safety Report 4849418-3 (Version None)
Quarter: 2005Q4

REPORT INFORMATION
  Report Type: 
  Country: None (occurrence: None)
  Receive Date: 20051207
  Receipt Date: 20051124
  Transmission Date: 20060501
  Serious: Yes (Life-Threatening, Hospitalization)
  Sender: FDA-Public Use
  Company Number: 2005158275

PATIENT
  Age: 29 Year
  Sex: Male
  Weight: 53 kg

DRUGS (3)
  1. VFEND [Suspect]
     Indication: INFECTION
     Dosage: 200 MG (QD), INTRAVENOUS
     Route: 042
     Dates: start: 20051102, end: 20051115
  2. PRODIF (FOSFLUCONAZOLE) [Suspect]
     Indication: SYSTEMIC CANDIDA
     Dosage: 1009 TO 504.5MG (QD), INTRAVENOUS
     Route: 042
     Dates: start: 20051022, end: 20051101
  3. VANCOMYCIN [Suspect]
     Indication: INFECTION
     Dosage: 2 MG (0.5 MG, 4 IN 1 D), INTRAVENOUS
     Route: 042
     Dates: start: 20051101, end: 20051115

REACTIONS (3)
  - BLOOD CULTURE POSITIVE [None]
  - CANDIDIASIS [None]
  - INTERSTITIAL LUNG DISEASE [None]
